FAERS Safety Report 5918430-5 (Version None)
Quarter: 2008Q4

REPORT INFORMATION
  Report Type: 
  Country: None (occurrence: None)
  Receive Date: 20081015
  Receipt Date: 20081002
  Transmission Date: 20090506
  Serious: Yes (Hospitalization, Other)
  Sender: FDA-Public Use
  Company Number: US-BAYER-200714914NA

PATIENT
  Age: 59 Year
  Sex: Female

DRUGS (20)
  1. BETASERON [Suspect]
     Indication: SECONDARY PROGRESSIVE MULTIPLE SCLEROSIS
     Dosage: TOTAL DAILY DOSE: 8 MIU
     Route: 058
  2. BETASERON [Suspect]
     Route: 058
     Dates: start: 20070720, end: 20071107
  3. BETASERON [Suspect]
     Dosage: TOTAL DAILY DOSE: 8 MIU
     Route: 058
     Dates: end: 20080701
  4. BETASERON [Suspect]
     Dosage: TOTAL DAILY DOSE: 4 MIU
     Route: 058
     Dates: start: 20071107
  5. BETASERON [Suspect]
     Dosage: TOTAL DAILY DOSE: 8 MIU
     Route: 058
  6. SOLU-MEDROL [Suspect]
  7. IBUPROFEN TABLETS [Suspect]
  8. TYLENOL (CAPLET) [Concomitant]
     Indication: PREMEDICATION
     Dosage: AS USED: 1 DF
  9. MAGNESIUM SULFATE [Concomitant]
  10. BACLOFEN [Concomitant]
  11. PREDNISONE [Concomitant]
  12. AMANTADINE HCL [Concomitant]
  13. ASPIRIN [Concomitant]
     Dosage: AS USED: 81 MG
  14. ULTRAM [Concomitant]
  15. XANAX [Concomitant]
  16. AMITIZA [Concomitant]
  17. ACIPHEX [Concomitant]
  18. POTASSIUM CHLORIDE [Concomitant]
  19. POTASSIUM CHLORIDE [Concomitant]
     Dates: start: 20070501
  20. POTASSIUM CHLORIDE [Concomitant]
     Dosage: TOTAL DAILY DOSE: 6 DF

REACTIONS (16)
  - BLOOD POTASSIUM DECREASED [None]
  - DEHYDRATION [None]
  - DUODENAL ULCER [None]
  - DYSARTHRIA [None]
  - DYSPHAGIA [None]
  - FACIAL PALSY [None]
  - INFLUENZA LIKE ILLNESS [None]
  - INJECTION SITE PAIN [None]
  - MULTIPLE SCLEROSIS [None]
  - MUSCULAR WEAKNESS [None]
  - NAUSEA [None]
  - PNEUMONIA [None]
  - THYROID CYST [None]
  - THYROID NEOPLASM [None]
  - VOMITING [None]
  - WEIGHT DECREASED [None]
